FAERS Safety Report 24135450 (Version 1)
Quarter: 2024Q3

REPORT INFORMATION
  Report Type: Report from Study
  Country: KR (occurrence: KR)
  Receive Date: 20240725
  Receipt Date: 20240725
  Transmission Date: 20241017
  Serious: Yes (Hospitalization)
  Sender: ABBVIE
  Company Number: KR-ABBVIE-5851300

PATIENT
  Age: 57 Year
  Sex: Female

DRUGS (10)
  1. SKYRIZI [Suspect]
     Active Substance: RISANKIZUMAB-RZAA
     Indication: Psoriasis
     Dosage: FREQUENCY TEXT: ONCE
     Route: 058
     Dates: start: 20230818, end: 20230818
  2. SKYRIZI [Suspect]
     Active Substance: RISANKIZUMAB-RZAA
     Dosage: FREQUENCY TEXT: ONCE
     Route: 058
     Dates: start: 20220917, end: 20220917
  3. SKYRIZI [Suspect]
     Active Substance: RISANKIZUMAB-RZAA
     Dosage: FREQUENCY TEXT: ONCE
     Route: 058
     Dates: start: 20220510, end: 20220510
  4. SKYRIZI [Suspect]
     Active Substance: RISANKIZUMAB-RZAA
     Dosage: FREQUENCY TEXT: ONCE
     Route: 058
     Dates: start: 20230320, end: 20230320
  5. SKYRIZI [Suspect]
     Active Substance: RISANKIZUMAB-RZAA
     Dosage: FREQUENCY TEXT: ONCE
     Route: 058
     Dates: start: 20221220, end: 20221220
  6. SKYRIZI [Suspect]
     Active Substance: RISANKIZUMAB-RZAA
     Dosage: FREQUENCY TEXT: ONCE
     Route: 058
     Dates: start: 20220628, end: 20220628
  7. BANAN [Concomitant]
     Active Substance: CEFPODOXIME PROXETIL
     Indication: Psoriasis
     Dosage: TIME INTERVAL: AS NECESSARY
     Route: 048
     Dates: start: 20220510
  8. Ebastel boryung [Concomitant]
     Indication: Psoriasis
     Dosage: TIME INTERVAL: AS NECESSARY
     Route: 048
     Dates: start: 20220510
  9. BEPOTEN [Concomitant]
     Indication: Psoriasis
     Dosage: TIME INTERVAL: AS NECESSARY
     Route: 048
     Dates: start: 20220510
  10. EVOPRIM [Concomitant]
     Indication: Psoriasis
     Dosage: TIME INTERVAL: AS NECESSARY: SC
     Route: 048
     Dates: start: 20220510

REACTIONS (1)
  - Trigger finger [Recovered/Resolved]

NARRATIVE: CASE EVENT DATE: 20220101
